FAERS Safety Report 18237422 (Version 2)
Quarter: 2020Q4

REPORT INFORMATION
  Report Type: Spontaneous
  Country: IT (occurrence: IT)
  Receive Date: 20200907
  Receipt Date: 20201022
  Transmission Date: 20210113
  Serious: Yes (Hospitalization)
  Sender: FDA-Public Use
  Company Number: IT-TEVA-2020-IT-1821206

PATIENT
  Age: 14 Year
  Sex: Male

DRUGS (1)
  1. RISPERIDONE RATIOPHARM 1 MG COMPRESSE RIVESTITE CON FILM [Suspect]
     Active Substance: RISPERIDONE
     Dosage: 15 DF
     Route: 048
     Dates: start: 20200805, end: 20200805

REACTIONS (5)
  - Suicide attempt [Recovering/Resolving]
  - Depressed level of consciousness [Recovering/Resolving]
  - Tachycardia [Recovering/Resolving]
  - Intentional overdose [Recovering/Resolving]
  - Sopor [Recovering/Resolving]

NARRATIVE: CASE EVENT DATE: 20200805
